FAERS Safety Report 24574800 (Version 3)
Quarter: 2024Q4

REPORT INFORMATION
  Report Type: Spontaneous
  Country: US (occurrence: US)
  Receive Date: 20241104
  Receipt Date: 20241210
  Transmission Date: 20250115
  Serious: Yes (Other)
  Sender: NOVARTIS
  Company Number: US-002147023-NVSC2024US209179

PATIENT
  Sex: Female

DRUGS (1)
  1. COSENTYX [Suspect]
     Active Substance: SECUKINUMAB
     Indication: Psoriatic arthropathy
     Dosage: UNK QMO (150MG/ML X2)
     Route: 065

REACTIONS (9)
  - Psoriatic arthropathy [Unknown]
  - Pain in extremity [Unknown]
  - Joint swelling [Unknown]
  - Arthralgia [Unknown]
  - Psoriasis [Unknown]
  - Device material issue [Unknown]
  - Product dose omission issue [Unknown]
  - Product supply issue [Unknown]
  - Product quality issue [Unknown]
